FAERS Safety Report 7633927-8 (Version None)
Quarter: 2011Q3

REPORT INFORMATION
  Report Type: 
  Country: None (occurrence: None)
  Receive Date: 20110725
  Receipt Date: 20110713
  Transmission Date: 20111222
  Serious: Yes (Hospitalization, Other)
  Sender: FDA-Public Use
  Company Number: US-JNJFOC-20110706504

PATIENT
  Sex: Male
  Weight: 73 kg

DRUGS (10)
  1. INFLIXIMAB, RECOMBINANT [Suspect]
     Indication: CROHN'S DISEASE
     Route: 042
     Dates: start: 20030122
  2. MERCAPTOPURINE [Concomitant]
     Indication: CROHN'S DISEASE
  3. INFLIXIMAB, RECOMBINANT [Suspect]
     Route: 042
  4. INFLIXIMAB, RECOMBINANT [Suspect]
     Route: 042
     Dates: start: 20101201
  5. ANTIBIOTICS [Concomitant]
     Indication: CROHN'S DISEASE
  6. INFLIXIMAB, RECOMBINANT [Suspect]
     Route: 042
     Dates: start: 20041229
  7. INFLIXIMAB, RECOMBINANT [Suspect]
     Route: 042
     Dates: start: 20051229
  8. INFLIXIMAB, RECOMBINANT [Suspect]
     Route: 042
     Dates: start: 20051005
  9. MULTI-VITAMINS [Concomitant]
     Indication: CROHN'S DISEASE
  10. FOSAMAX [Concomitant]
     Indication: CROHN'S DISEASE

REACTIONS (3)
  - CHRONIC TONSILLITIS [None]
  - NASAL SEPTUM DEVIATION [None]
  - NASAL TURBINATE ABNORMALITY [None]
